FAERS Safety Report 8451498-3 (Version None)
Quarter: 2012Q2

REPORT INFORMATION
  Report Type: 
  Country: None (occurrence: None)
  Receive Date: 20120620
  Receipt Date: 20120321
  Transmission Date: 20120825
  Serious: No
  Sender: FDA-Public Use
  Company Number: US-VERTEX PHARMACEUTICALS INC.-AE-2012-003165

PATIENT
  Sex: Male
  Weight: 96.248 kg

DRUGS (4)
  1. PEGASYS [Concomitant]
     Indication: HEPATITIS C
     Route: 058
     Dates: start: 20120302
  2. INCIVEK [Suspect]
     Indication: HEPATITIS C
     Route: 048
     Dates: start: 20120302
  3. RIBASPHERE [Concomitant]
     Indication: HEPATITIS C
     Route: 048
     Dates: start: 20120302
  4. BENICAR [Concomitant]
     Indication: HYPERTENSION
     Dates: start: 20110101

REACTIONS (7)
  - PRURITUS GENERALISED [None]
  - CONSTIPATION [None]
  - FATIGUE [None]
  - HYPOAESTHESIA [None]
  - DISTURBANCE IN ATTENTION [None]
  - PARAESTHESIA [None]
  - FEELING ABNORMAL [None]
